FAERS Safety Report 19062221 (Version 1)
Quarter: 2021Q1

REPORT INFORMATION
  Report Type: Spontaneous
  Country: FR (occurrence: FR)
  Receive Date: 20210326
  Receipt Date: 20210326
  Transmission Date: 20210420
  Serious: Yes (Hospitalization)
  Sender: FDA-Public Use
  Company Number: FR-ROCHE-2796153

PATIENT
  Age: 55 Year
  Sex: Male
  Weight: 95 kg

DRUGS (1)
  1. ROACTEMRA [Suspect]
     Active Substance: TOCILIZUMAB
     Indication: COVID-19 PNEUMONIA
     Route: 058
     Dates: start: 20210219, end: 20210221

REACTIONS (2)
  - Neutropenia [Recovering/Resolving]
  - Episcleritis [Recovered/Resolved]

NARRATIVE: CASE EVENT DATE: 20210303
